FAERS Safety Report 15571136 (Version 2)
Quarter: 2018Q4

REPORT INFORMATION
  Report Type: Spontaneous
  Country: US (occurrence: US)
  Receive Date: 20181031
  Receipt Date: 20181218
  Transmission Date: 20190205
  Serious: Yes (Hospitalization, Disabling, Other)
  Sender: FDA-Public Use
  Company Number: US-JNJFOC-20181042237

PATIENT
  Sex: Male

DRUGS (1)
  1. INVOKANA [Suspect]
     Active Substance: CANAGLIFLOZIN
     Indication: TYPE 2 DIABETES MELLITUS
     Dosage: 100 AND 300 MG
     Route: 048
     Dates: start: 20150211, end: 201709

REACTIONS (9)
  - Cellulitis [Recovering/Resolving]
  - Wound necrosis [Recovering/Resolving]
  - Osteomyelitis [Recovering/Resolving]
  - Impaired healing [Recovering/Resolving]
  - Extremity necrosis [Recovering/Resolving]
  - Ulcer [Recovering/Resolving]
  - Limb amputation [Unknown]
  - Gangrene [Recovering/Resolving]
  - Postoperative wound infection [Recovering/Resolving]

NARRATIVE: CASE EVENT DATE: 2015
